FAERS Safety Report 4385051-8 (Version None)
Quarter: 2004Q2

REPORT INFORMATION
  Report Type: 
  Country: None (occurrence: None)
  Receive Date: 20040625
  Receipt Date: 20030805
  Transmission Date: 20050107
  Serious: Yes (Death, Hospitalization, Other)
  Sender: FDA-Public Use
  Company Number: AT-GLAXOSMITHKLINE-B0336420A

PATIENT
  Age: 37 Year
  Sex: Female

DRUGS (1)
  1. ZINNAT [Suspect]
     Indication: DRUG USE FOR UNKNOWN INDICATION
     Route: 065
     Dates: start: 19981101, end: 19981113

REACTIONS (18)
  - AGRANULOCYTOSIS [None]
  - BODY TEMPERATURE INCREASED [None]
  - BONE MARROW DEPRESSION [None]
  - BRONCHITIS [None]
  - EXOPHTHALMOS [None]
  - GENERAL PHYSICAL HEALTH DETERIORATION [None]
  - GOITRE [None]
  - LYMPHADENOPATHY [None]
  - MALNUTRITION [None]
  - MUCOUS MEMBRANE DISORDER [None]
  - NEUTROPENIA [None]
  - PALLOR [None]
  - PNEUMONIA [None]
  - PNEUMOTHORAX [None]
  - RESPIRATORY FAILURE [None]
  - SEPSIS [None]
  - SPLENOMEGALY [None]
  - TACHYCARDIA [None]
